FAERS Safety Report 16661890 (Version 1)
Quarter: 2019Q3

REPORT INFORMATION
  Report Type: Spontaneous
  Country: AE (occurrence: AE)
  Receive Date: 20190802
  Receipt Date: 20190802
  Transmission Date: 20191004
  Serious: No
  Sender: FDA-Public Use
  Company Number: None

PATIENT
  Age: 5 Year
  Sex: Female

DRUGS (1)
  1. PREDNISOLONE 3MG/ML SYRUP [Suspect]
     Active Substance: PREDNISOLONE
     Indication: URTICARIA

REACTIONS (1)
  - Nocturia [None]
